FAERS Safety Report 16931414 (Version 1)
Quarter: 2019Q4

REPORT INFORMATION
  Report Type: Spontaneous
  Country: GB (occurrence: GB)
  Receive Date: 20191017
  Receipt Date: 20191017
  Transmission Date: 20200122
  Serious: Yes (Other)
  Sender: FDA-Public Use
  Company Number: GB-MYLANLABS-2019M1098054

PATIENT
  Age: 47 Year
  Sex: Female

DRUGS (2)
  1. ATORVASTATIN [Suspect]
     Active Substance: ATORVASTATIN
     Indication: BLOOD CHOLESTEROL INCREASED
     Dosage: 20 MILLIGRAM
     Route: 048
     Dates: start: 20170906, end: 20190330
  2. NOVORAPID [Concomitant]
     Active Substance: INSULIN ASPART
     Indication: TYPE 1 DIABETES MELLITUS
     Dosage: UNK

REACTIONS (4)
  - Fatigue [Recovered/Resolved with Sequelae]
  - Arthralgia [Recovering/Resolving]
  - Asthenia [Recovered/Resolved with Sequelae]
  - Myalgia [Recovering/Resolving]

NARRATIVE: CASE EVENT DATE: 20170925
